FAERS Safety Report 13512548 (Version 1)
Quarter: 2017Q2

REPORT INFORMATION
  Report Type: Report from Study
  Country: AU (occurrence: AU)
  Receive Date: 20170504
  Receipt Date: 20170504
  Transmission Date: 20170830
  Serious: Yes (Death, Hospitalization, Other)
  Sender: FDA-Public Use
  Company Number: AU-ASTRAZENECA-2017SE45085

PATIENT
  Age: 54 Year
  Sex: Female

DRUGS (3)
  1. QUETIAPINE. [Suspect]
     Active Substance: QUETIAPINE
     Dosage: 3.0G ONCE/SINGLE ADMINISTRATION
     Route: 048
  2. LAMOTRIGINE. [Suspect]
     Active Substance: LAMOTRIGINE
     Dosage: 5.0G ONCE/SINGLE ADMINISTRATION
     Route: 048
  3. ZOPICLONE [Suspect]
     Active Substance: ZOPICLONE
     Dosage: 75.0MG ONCE/SINGLE ADMINISTRATION
     Route: 048

REACTIONS (8)
  - Electrocardiogram QT prolonged [Unknown]
  - Cardiac arrest [Fatal]
  - Electrocardiogram ST segment depression [Unknown]
  - Overdose [Fatal]
  - Distributive shock [Unknown]
  - Hypotension [Unknown]
  - Electrocardiogram QRS complex prolonged [Unknown]
  - Pulseless electrical activity [Fatal]
